FAERS Safety Report 16892834 (Version 1)
Quarter: 2019Q4

REPORT INFORMATION
  Report Type: Spontaneous
  Country: US (occurrence: US)
  Receive Date: 20191007
  Receipt Date: 20191007
  Transmission Date: 20200122
  Serious: No
  Sender: FDA-Public Use
  Company Number: US-BIOMARINAP-US-2019-125910

PATIENT

DRUGS (1)
  1. PALYNZIQ [Suspect]
     Active Substance: PEGVALIASE-PQPZ
     Indication: PRODUCT USED FOR UNKNOWN INDICATION
     Route: 058

REACTIONS (5)
  - Pyrexia [Recovering/Resolving]
  - Peripheral swelling [Not Recovered/Not Resolved]
  - Vomiting [Recovering/Resolving]
  - Injection site swelling [Not Recovered/Not Resolved]
  - Dizziness [Recovering/Resolving]
